FAERS Safety Report 9014767 (Version 1)
Quarter: 2013Q1

REPORT INFORMATION
  Report Type: Report from Study
  Country: US (occurrence: US)
  Receive Date: 20130115
  Receipt Date: 20130115
  Transmission Date: 20140127
  Serious: Yes (Hospitalization, Other)
  Sender: FDA-Public Use
  Company Number: US-US-EMD SERONO, INC.-7186622

PATIENT
  Sex: Female

DRUGS (1)
  1. REBIF [Suspect]
     Indication: MULTIPLE SCLEROSIS
     Route: 058
     Dates: start: 20060602

REACTIONS (6)
  - Intestinal obstruction [Unknown]
  - Optic neuritis [Unknown]
  - Multiple sclerosis [Unknown]
  - Balance disorder [Unknown]
  - Fall [Unknown]
  - Ligament sprain [Unknown]
